FAERS Safety Report 7996918-3 (Version None)
Quarter: 2011Q4

REPORT INFORMATION
  Report Type: 
  Country: None (occurrence: None)
  Receive Date: 20111221
  Receipt Date: 20111209
  Transmission Date: 20120403
  Serious: Yes (Other)
  Sender: FDA-Public Use
  Company Number: MX-SANOFI-AVENTIS-2011SA080923

PATIENT
  Age: 59 Year
  Sex: Female
  Weight: 75 kg

DRUGS (8)
  1. LANTUS [Suspect]
     Indication: TYPE 2 DIABETES MELLITUS
     Route: 058
     Dates: start: 20110701, end: 20111101
  2. ENALAPRIL [Concomitant]
     Route: 048
     Dates: start: 20010101
  3. VITAMIN E [Concomitant]
     Route: 048
     Dates: start: 20010101
  4. FOLIC ACID [Concomitant]
     Route: 048
     Dates: start: 20010101
  5. METFORMIN HCL [Concomitant]
     Indication: TYPE 2 DIABETES MELLITUS
     Route: 048
     Dates: start: 20111101
  6. LEVOTIROXINA [Concomitant]
     Indication: HYPOTHYROIDISM
     Route: 048
     Dates: start: 20010101
  7. CALCIUM [Concomitant]
     Route: 048
  8. GLYBURIDE [Concomitant]
     Indication: TYPE 2 DIABETES MELLITUS
     Route: 048
     Dates: start: 20111101

REACTIONS (2)
  - ANKLE FRACTURE [None]
  - FALL [None]
